FAERS Safety Report 21591916 (Version 1)
Quarter: 2022Q4

REPORT INFORMATION
  Report Type: Spontaneous
  Country: JP (occurrence: JP)
  Receive Date: 20221114
  Receipt Date: 20221114
  Transmission Date: 20230112
  Serious: Yes (Life-Threatening, Hospitalization, Other)
  Sender: FDA-Public Use
  Company Number: JP-VIIV HEALTHCARE LIMITED-JP2022JPN162906

PATIENT

DRUGS (7)
  1. TIVICAY [Suspect]
     Active Substance: DOLUTEGRAVIR SODIUM
     Dosage: UNK
  2. EMTRIVA [Concomitant]
     Active Substance: EMTRICITABINE
     Dosage: UNK
  3. PREZISTA [Concomitant]
     Active Substance: DARUNAVIR ETHANOLATE
     Dosage: UNK
  4. NORVIR [Concomitant]
     Active Substance: RITONAVIR
     Dosage: UNK
  5. CANDESARTAN CILEXETIL [Concomitant]
     Active Substance: CANDESARTAN CILEXETIL
     Dosage: UNK
  6. OLOPATADINE HYDROCHLORIDE [Concomitant]
     Active Substance: OLOPATADINE HYDROCHLORIDE
     Dosage: UNK
  7. METFORMIN HYDROCHLORIDE [Concomitant]
     Active Substance: METFORMIN HYDROCHLORIDE
     Dosage: UNK

REACTIONS (19)
  - Lactic acidosis [Recovering/Resolving]
  - Cellulitis [Unknown]
  - Chest discomfort [Unknown]
  - Nausea [Unknown]
  - Diarrhoea [Unknown]
  - Depressed level of consciousness [Unknown]
  - Blood pressure decreased [Unknown]
  - Cardiac contractility decreased [Unknown]
  - Cyanosis [Unknown]
  - Jugular vein distension [Unknown]
  - Hyperkalaemia [Unknown]
  - Septic shock [Unknown]
  - Circulatory collapse [Recovering/Resolving]
  - Sepsis [Unknown]
  - Hypophagia [Unknown]
  - Vitamin B1 deficiency [Unknown]
  - Liver disorder [Unknown]
  - Disseminated intravascular coagulation [Unknown]
  - Systemic inflammatory response syndrome [Unknown]
